FAERS Safety Report 5587920-X (Version None)
Quarter: 2008Q1

REPORT INFORMATION
  Report Type: 
  Country: None (occurrence: None)
  Receive Date: 20080108
  Receipt Date: 20080103
  Transmission Date: 20080703
  Serious: Yes (Life-Threatening, Hospitalization, Disabling)
  Sender: FDA-Public Use
  Company Number: 2008-169863-NL

PATIENT
  Age: 36 Year
  Sex: Female

DRUGS (6)
  1. ETONOGESTREL [Suspect]
     Dosage: DF
     Dates: start: 20070119, end: 20071119
  2. FEMODETTE [Concomitant]
  3. TRANEXAMIC ACID [Concomitant]
  4. AMOXICILLIN [Concomitant]
  5. LORATADINE [Concomitant]
  6. PROPRANOLOL [Concomitant]

REACTIONS (3)
  - LOSS OF CONSCIOUSNESS [None]
  - SHOCK [None]
  - VAGINAL HAEMORRHAGE [None]
